FAERS Safety Report 6479377-1 (Version None)
Quarter: 2009Q4

REPORT INFORMATION
  Report Type: 
  Country: None (occurrence: None)
  Receive Date: 20091207
  Receipt Date: 20090225
  Transmission Date: 20100525
  Serious: No
  Sender: FDA-Public Use
  Company Number: US-AMGEN-KDL335788

PATIENT
  Sex: Female

DRUGS (2)
  1. ENBREL [Suspect]
     Indication: RHEUMATOID ARTHRITIS
     Route: 058
  2. BONIVA [Concomitant]
     Dates: start: 20070101, end: 20071101

REACTIONS (4)
  - FEELING ABNORMAL [None]
  - HERPES ZOSTER [None]
  - PAIN [None]
  - THERAPEUTIC RESPONSE DECREASED [None]
